FAERS Safety Report 15675648 (Version 1)
Quarter: 2018Q4

REPORT INFORMATION
  Report Type: Spontaneous
  Country: US (occurrence: US)
  Receive Date: 20181130
  Receipt Date: 20181130
  Transmission Date: 20190205
  Serious: No
  Sender: FDA-Public Use
  Company Number: US-TEVA-2018-US-974850

PATIENT
  Sex: Male

DRUGS (1)
  1. DONEPEZIL. [Suspect]
     Active Substance: DONEPEZIL
     Route: 065
     Dates: start: 2017

REACTIONS (3)
  - Memory impairment [Unknown]
  - Confusional state [Unknown]
  - Feeling abnormal [Unknown]
